FAERS Safety Report 19877927 (Version 1)
Quarter: 2021Q3

REPORT INFORMATION
  Report Type: Spontaneous
  Country: US (occurrence: US)
  Receive Date: 20210924
  Receipt Date: 20210924
  Transmission Date: 20211014
  Serious: Yes (Hospitalization, Other)
  Sender: FDA-Public Use
  Company Number: US-AUROBINDO-AUR-APL-2021-039388

PATIENT
  Age: 29 Year
  Sex: Female

DRUGS (1)
  1. KETAMINE HYDROCHLORIDE. [Suspect]
     Active Substance: KETAMINE HYDROCHLORIDE
     Indication: PRODUCT USED FOR UNKNOWN INDICATION
     Dosage: UNK
     Route: 065

REACTIONS (12)
  - Kidney fibrosis [Recovered/Resolved]
  - Hydronephrosis [Recovered/Resolved]
  - Biliary tract disorder [Unknown]
  - Nausea [Unknown]
  - Asthenia [Unknown]
  - Drug abuse [Unknown]
  - Hyperbilirubinaemia [Recovering/Resolving]
  - Transaminases increased [Recovering/Resolving]
  - Abdominal pain upper [Unknown]
  - Urinary tract disorder [Unknown]
  - Acute kidney injury [Recovered/Resolved]
  - Oliguria [Recovered/Resolved]
